FAERS Safety Report 23555478 (Version 1)
Quarter: 2024Q1

REPORT INFORMATION
  Report Type: Spontaneous
  Country: US (occurrence: US)
  Receive Date: 20240222
  Receipt Date: 20240222
  Transmission Date: 20240409
  Serious: Yes (Life-Threatening)
  Sender: FDA-Public Use
  Company Number: US-LANTHEUS HOLDINGS, INC.-LMI-2023-01278

PATIENT
  Age: 93 Year
  Sex: Female
  Weight: 98 kg

DRUGS (1)
  1. DEFINITY [Suspect]
     Active Substance: PERFLUTREN
     Indication: Product used for unknown indication
     Dosage: 2 MILLILITRE (1.3 ML DEFINITY PREPARED IN 10 ML DILUENT)
     Route: 042
     Dates: start: 20231026, end: 20231026

REACTIONS (1)
  - Anaphylactic reaction [Recovered/Resolved]

NARRATIVE: CASE EVENT DATE: 20231026
